FAERS Safety Report 8244148-2 (Version None)
Quarter: 2012Q1

REPORT INFORMATION
  Report Type: 
  Country: None (occurrence: None)
  Receive Date: 20120329
  Receipt Date: 20111230
  Transmission Date: 20120608
  Serious: No
  Sender: FDA-Public Use
  Company Number: US-MYLANLABS-2012S1000020

PATIENT
  Age: 79 Year
  Sex: Female

DRUGS (1)
  1. AMLODIPINE [Suspect]

REACTIONS (1)
  - MUSCLE SPASMS [None]
